FAERS Safety Report 6874943-3 (Version None)
Quarter: 2010Q2

REPORT INFORMATION
  Report Type: 
  Country: None (occurrence: None)
  Receive Date: 20100610
  Receipt Date: 20100204
  Transmission Date: 20101027
  Serious: Yes (Other)
  Sender: FDA-Public Use
  Company Number: 2010SP007316

PATIENT
  Age: 50 Year
  Sex: Female

DRUGS (3)
  1. SAPHRIS [Suspect]
     Indication: PSYCHOTIC DISORDER
     Dosage: 10 MG;BID;SL
     Dates: start: 20091201, end: 20100101
  2. RISPERDAL [Concomitant]
  3. PROZAC [Concomitant]

REACTIONS (3)
  - EXTRAPYRAMIDAL DISORDER [None]
  - TARDIVE DYSKINESIA [None]
  - THERAPEUTIC PRODUCT INEFFECTIVE [None]
